FAERS Safety Report 4676353-6 (Version None)
Quarter: 2005Q2

REPORT INFORMATION
  Report Type: 
  Country: None (occurrence: None)
  Receive Date: 20050527
  Receipt Date: 20050224
  Transmission Date: 20051028
  Serious: No
  Sender: FDA-Public Use
  Company Number: US-GLAXOSMITHKLINE-A0547184A

PATIENT
  Age: 51 Year
  Sex: Female

DRUGS (2)
  1. WELLBUTRIN XL [Suspect]
     Indication: DEPRESSION
     Dosage: 300MG PER DAY
     Route: 048
     Dates: start: 20050217, end: 20050224
  2. VOLTAREN [Concomitant]

REACTIONS (9)
  - ANOREXIA [None]
  - ANXIETY [None]
  - DRY MOUTH [None]
  - DYSPNOEA [None]
  - FLASHBACK [None]
  - INSOMNIA [None]
  - NAUSEA [None]
  - RASH [None]
  - TREMOR [None]
